FAERS Safety Report 4681933-8 (Version None)
Quarter: 2005Q2

REPORT INFORMATION
  Report Type: 
  Country: None (occurrence: None)
  Receive Date: 20050602
  Receipt Date: 20050523
  Transmission Date: 20051028
  Serious: Yes (Death, Disabling)
  Sender: FDA-Public Use
  Company Number: 2005072441

PATIENT
  Age: 59 Year
  Sex: Male

DRUGS (10)
  1. CABERGOLINE [Suspect]
     Indication: PARKINSON'S DISEASE
     Dosage: SEE IMAGE
     Route: 048
     Dates: start: 19991005, end: 19991019
  2. CABERGOLINE [Suspect]
     Indication: PARKINSON'S DISEASE
     Dosage: SEE IMAGE
     Route: 048
     Dates: start: 19991020, end: 19991101
  3. CABERGOLINE [Suspect]
     Indication: PARKINSON'S DISEASE
     Dosage: SEE IMAGE
     Route: 048
     Dates: start: 19991102
  4. . [Concomitant]
  5. . [Concomitant]
  6. EC DOPARL (BENSERAZIDE HYDROCHLORIDE, LEVODOPA) [Suspect]
     Indication: PARKINSON'S DISEASE
     Dosage: 375 MG (93.75 MG, QID), ORAL
     Route: 048
     Dates: start: 19961221
  7. PERMAX [Suspect]
     Indication: PARKINSON'S DISEASE
     Dosage: 100 MG (50 MG, TID), ORAL
     Route: 048
     Dates: start: 19970217
  8. DILAZEP DIHYDROCHLORIDE (DILAZEP DIHYDROCHLORIDE) [Suspect]
     Indication: GLOMERULONEPHRITIS PROLIFERATIVE
     Dosage: 150 MG (50 MG, TID), ORAL
     Route: 048
     Dates: start: 20010703
  9. URALYT (ARNICA EXTRACT, CONVALLARIA GLYCOSIDES, ECHINACEA ANGUSTIFOLIA [Suspect]
     Indication: GOUT
     Dosage: 1 GRAM, QD, ORAL
     Route: 048
     Dates: start: 19970108
  10. ALLOPURINOL [Suspect]
     Indication: GOUT
     Dosage: 100 MG (100 MG, QD), ORAL
     Route: 048
     Dates: start: 19970108

REACTIONS (1)
  - MYOCARDIAL INFARCTION [None]
